FAERS Safety Report 25474640 (Version 7)
Quarter: 2025Q4

REPORT INFORMATION
  Report Type: Spontaneous
  Country: US (occurrence: US)
  Receive Date: 20250624
  Receipt Date: 20251027
  Transmission Date: 20260117
  Serious: Yes (Hospitalization, Other)
  Sender: SANOFI AVENTIS
  Company Number: US-SA-2025SA177836

PATIENT
  Age: 75 Year
  Sex: Male
  Weight: 88 kg

DRUGS (2)
  1. ALTUVIIIO [Suspect]
     Active Substance: EFANESOCTOCOG ALFA
     Indication: Haemorrhage prophylaxis
     Dosage: 4285 U ( +/-10%), QW
     Route: 042
     Dates: start: 202412, end: 202509
  2. ALTUVIIIO [Suspect]
     Active Substance: EFANESOCTOCOG ALFA
     Indication: Factor VIII deficiency
     Dosage: 4285 U ( +/-10%), PRN
     Route: 042
     Dates: start: 202412, end: 202509

REACTIONS (7)
  - Contusion [Unknown]
  - Anti factor VIII antibody increased [Not Recovered/Not Resolved]
  - Skin abrasion [Recovering/Resolving]
  - Limb discomfort [Unknown]
  - Haemorrhage [Unknown]
  - Haemorrhage [Unknown]
  - Drug ineffective [Unknown]

NARRATIVE: CASE EVENT DATE: 20250604
